FAERS Safety Report 23914570 (Version 1)
Quarter: 2024Q2

REPORT INFORMATION
  Report Type: Spontaneous
  Country: US (occurrence: None)
  Receive Date: 20240528
  Receipt Date: 20240528
  Transmission Date: 20240716
  Serious: No
  Sender: FDA-Public Use
  Company Number: None

PATIENT
  Age: 77 Year
  Sex: Male

DRUGS (1)
  1. LENALIDOMIDE [Suspect]
     Active Substance: LENALIDOMIDE
     Indication: Plasma cell myeloma
     Dates: start: 20221031, end: 20240520

REACTIONS (4)
  - Nausea [None]
  - Vomiting [None]
  - Hypercalcaemia [None]
  - Therapy cessation [None]

NARRATIVE: CASE EVENT DATE: 20240520
